FAERS Safety Report 14847444 (Version 1)
Quarter: 2018Q2

REPORT INFORMATION
  Report Type: Spontaneous
  Country: US (occurrence: US)
  Receive Date: 20180418
  Receipt Date: 20180418
  Transmission Date: 20180711
  Serious: Yes (Hospitalization)
  Sender: FDA-Public Use
  Company Number: None

PATIENT
  Age: 5 Year
  Sex: Female

DRUGS (2)
  1. PULMOZYME [Suspect]
     Active Substance: DORNASE ALFA
     Indication: RESPIRATORY FAILURE
     Dosage: ?          OTHER ROUTE:INHALATION?
     Route: 055
     Dates: start: 20151220
  2. TOBRAMYCIN. [Suspect]
     Active Substance: TOBRAMYCIN
     Indication: HYPOXIA
     Dosage: OTHER FREQUENCY:BID X28 DS OFF 28D;OTHER ROUTE:INHALATION?
     Route: 055
     Dates: start: 20160212

REACTIONS (1)
  - Respiratory tract infection [None]

NARRATIVE: CASE EVENT DATE: 20180410
